FAERS Safety Report 7991581-X (Version None)
Quarter: 2011Q4

REPORT INFORMATION
  Report Type: 
  Country: None (occurrence: None)
  Receive Date: 20111219
  Receipt Date: 20110323
  Transmission Date: 20120403
  Serious: No
  Sender: FDA-Public Use
  Company Number: US-ABBOTT-11P-163-0713945-00

PATIENT
  Age: 67 Year
  Sex: Male

DRUGS (3)
  1. DIOVAN [Concomitant]
     Indication: HYPERTENSION
  2. MELOXICAM [Concomitant]
     Indication: PAIN
  3. ADVICOR [Suspect]
     Indication: BLOOD CHOLESTEROL INCREASED
     Dosage: 1000/40 MG  DOSE
     Dates: start: 20110218

REACTIONS (1)
  - SWEAT DISCOLOURATION [None]
